FAERS Safety Report 10071548 (Version 2)
Quarter: 2014Q3

REPORT INFORMATION
  Report Type: Spontaneous
  Country: GB (occurrence: GB)
  Receive Date: 20140410
  Receipt Date: 20140724
  Transmission Date: 20150326
  Serious: Yes (Hospitalization, Disabling, Congenital Anomaly, Other)
  Sender: FDA-Public Use
  Company Number: GB-ABBVIE-14P-167-1220566-00

PATIENT
  Age: 0 Day
  Sex: Female

DRUGS (1)
  1. DEPACON [Suspect]
     Active Substance: VALPROATE SODIUM
     Indication: MATERNAL EXPOSURE TIMING UNSPECIFIED
     Route: 064

REACTIONS (19)
  - Failure to thrive [Unknown]
  - Brachycephaly [Unknown]
  - Foetal anticonvulsant syndrome [Unknown]
  - Cleft palate [Unknown]
  - Congenital inguinal hernia [Unknown]
  - Congenital hearing disorder [Unknown]
  - Hypertelorism of orbit [Unknown]
  - Heart disease congenital [Unknown]
  - Hypospadias [Unknown]
  - Foetal anticonvulsant syndrome [Unknown]
  - Dacryostenosis congenital [Unknown]
  - Coloboma [Unknown]
  - Speech disorder developmental [Not Recovered/Not Resolved]
  - Obesity [Unknown]
  - Motor developmental delay [Unknown]
  - Dysmorphism [Unknown]
  - Foetal exposure during pregnancy [Unknown]
  - Congenital foot malformation [Unknown]
  - Congenital torticollis [Unknown]

NARRATIVE: CASE EVENT DATE: 20120316
